FAERS Safety Report 4467251-1 (Version None)
Quarter: 2004Q4

REPORT INFORMATION
  Report Type: 
  Country: None (occurrence: None)
  Receive Date: 20041001
  Receipt Date: 20040917
  Transmission Date: 20050328
  Serious: Yes (Death)
  Sender: FDA-Public Use
  Company Number: 0410021

PATIENT
  Age: 1 Year
  Sex: Male
  Weight: 0.4536 kg

DRUGS (1)
  1. NITISINONE/COMPASS.USE [Suspect]
     Indication: AMINO ACID LEVEL INCREASED
     Dosage: 0.78 MG/KG MG/KG/DAY ORAL
     Route: 048
     Dates: start: 20040531, end: 20040618

REACTIONS (4)
  - COAGULOPATHY [None]
  - HEPATIC FUNCTION ABNORMAL [None]
  - INFECTION [None]
  - PULMONARY HAEMORRHAGE [None]
